FAERS Safety Report 18207759 (Version 1)
Quarter: 2020Q3

REPORT INFORMATION
  Report Type: Spontaneous
  Country: US (occurrence: US)
  Receive Date: 20200828
  Receipt Date: 20200828
  Transmission Date: 20201103
  Serious: No
  Sender: FDA-Public Use
  Company Number: US-PFIZER INC-2020331687

PATIENT
  Age: 67 Year
  Sex: Female
  Weight: 64.41 kg

DRUGS (4)
  1. DUAVEE [Suspect]
     Active Substance: BAZEDOXIFENE ACETATE\ESTROGENS, CONJUGATED
     Indication: HOT FLUSH
     Dosage: 1 DF, 1X/DAY (0.45?20MG, ONE TABLET IN MORNING)
  2. DUAVEE [Suspect]
     Active Substance: BAZEDOXIFENE ACETATE\ESTROGENS, CONJUGATED
     Indication: PROPHYLAXIS
  3. LUTEIN [Concomitant]
     Active Substance: LUTEIN
     Dosage: 25 MG, 1X/DAY (ONE PILL AT NIGH)
  4. ROSUVASTATIN CALCIUM. [Concomitant]
     Active Substance: ROSUVASTATIN CALCIUM
     Indication: MACULAR DEGENERATION
     Dosage: 10 MG, 1X/DAY

REACTIONS (3)
  - Breast pain [Unknown]
  - Osteoporosis [Unknown]
  - Vaginal discharge [Unknown]
